FAERS Safety Report 13005452 (Version 2)
Quarter: 2017Q1

REPORT INFORMATION
  Report Type: Spontaneous
  Country: JP (occurrence: JP)
  Receive Date: 20161207
  Receipt Date: 20170116
  Transmission Date: 20170428
  Serious: Yes (Death, Hospitalization, Other)
  Sender: FDA-Public Use
  Company Number: JP-ELI_LILLY_AND_COMPANY-JP201612001064

PATIENT
  Age: 67 Year
  Sex: Male

DRUGS (6)
  1. ERBITUX [Suspect]
     Active Substance: CETUXIMAB
     Dosage: UNK UNK, WEEKLY (1/W)
     Route: 065
     Dates: start: 20141222
  2. PACLITAXEL. [Suspect]
     Active Substance: PACLITAXEL
     Indication: LARYNGEAL CANCER
     Dosage: 80 MG/M2, WEEKLY (1/W)
     Route: 042
     Dates: start: 20141222, end: 20141229
  3. FENTANYL. [Concomitant]
     Active Substance: FENTANYL
     Indication: PAIN
     Dosage: UNK UNK, UNKNOWN
     Route: 062
  4. ERBITUX [Suspect]
     Active Substance: CETUXIMAB
     Dosage: 250 MG/M2, WEEKLY (1/W)
     Route: 065
  5. MINOMYCIN [Concomitant]
     Active Substance: MINOCYCLINE HYDROCHLORIDE
     Indication: DERMATITIS ACNEIFORM
     Dosage: UNK UNK, UNKNOWN
     Route: 048
  6. ERBITUX [Suspect]
     Active Substance: CETUXIMAB
     Indication: LARYNGEAL CANCER
     Dosage: 400 MG/M2, WEEKLY (1/W)
     Route: 065
     Dates: start: 20141222

REACTIONS (7)
  - White blood cell count decreased [Recovered/Resolved]
  - Device related infection [Not Recovered/Not Resolved]
  - Off label use [Unknown]
  - Multiple organ dysfunction syndrome [Fatal]
  - Dermatitis acneiform [Unknown]
  - Pharyngeal inflammation [Unknown]
  - Sepsis [Not Recovered/Not Resolved]

NARRATIVE: CASE EVENT DATE: 20141229
